FAERS Safety Report 23441622 (Version 2)
Quarter: 2024Q1

REPORT INFORMATION
  Report Type: Spontaneous
  Country: US (occurrence: US)
  Receive Date: 20240125
  Receipt Date: 20240328
  Transmission Date: 20240410
  Serious: No
  Sender: FDA-Public Use
  Company Number: US-ABBVIE-5596829

PATIENT
  Age: 84 Year
  Sex: Female
  Weight: 58.059 kg

DRUGS (1)
  1. FENOFIBRATE [Suspect]
     Active Substance: FENOFIBRATE
     Indication: Product used for unknown indication
     Route: 048

REACTIONS (8)
  - White blood cell count increased [Recovered/Resolved]
  - Odynophagia [Unknown]
  - Illness [Unknown]
  - Decreased appetite [Unknown]
  - Nasopharyngitis [Unknown]
  - Blood triglycerides increased [Not Recovered/Not Resolved]
  - Asthenia [Unknown]
  - Upper respiratory tract infection [Unknown]

NARRATIVE: CASE EVENT DATE: 20231201
